FAERS Safety Report 19402177 (Version 2)
Quarter: 2021Q3

REPORT INFORMATION
  Report Type: Spontaneous
  Country: TR (occurrence: TR)
  Receive Date: 20210611
  Receipt Date: 20210722
  Transmission Date: 20211014
  Serious: Yes (Hospitalization)
  Sender: FDA-Public Use
  Company Number: TR-NOVOPROD-762522

PATIENT
  Age: 37 Year
  Sex: Female
  Weight: 103 kg

DRUGS (6)
  1. LEVOTIRON [Concomitant]
     Active Substance: LEVOTHYROXINE SODIUM
     Indication: HYPERTHYROIDISM
     Dosage: 50 MCG(5 DAYS)
     Route: 048
  2. DEVIT 3 [Concomitant]
     Active Substance: CHOLECALCIFEROL
     Indication: VITAMIN SUPPLEMENTATION
     Dosage: 9 DROPS
     Route: 048
  3. ALFAMET [Concomitant]
     Active Substance: METHYLDOPA
     Indication: HYPERTENSION
     Dosage: 250 MG, QD
     Route: 048
  4. LEVOTIRON [Concomitant]
     Active Substance: LEVOTHYROXINE SODIUM
     Dosage: 25 MCG(2 DAYS)
     Route: 048
  5. DECAVIT M [Concomitant]
     Indication: VITAMIN SUPPLEMENTATION
     Dosage: 1 X 1 PER DAY
     Route: 048
  6. INSULATARD HM PENFILL [Suspect]
     Active Substance: INSULIN NOS
     Indication: TYPE 2 DIABETES MELLITUS
     Dosage: 4 IU, QD
     Route: 058
     Dates: start: 20201019

REACTIONS (4)
  - Hypertension [Not Recovered/Not Resolved]
  - Blood glucose decreased [Recovered/Resolved]
  - Premature delivery [Unknown]
  - Maternal exposure during pregnancy [Recovered/Resolved]

NARRATIVE: CASE EVENT DATE: 20201019
